FAERS Safety Report 15844767 (Version 1)
Quarter: 2019Q1

REPORT INFORMATION
  Report Type: Spontaneous
  Country: US (occurrence: US)
  Receive Date: 20190118
  Receipt Date: 20190118
  Transmission Date: 20190417
  Serious: Yes (Death, Hospitalization)
  Sender: FDA-Public Use
  Company Number: US-ACTELION-A-NJ2018-184073

PATIENT
  Age: 55 Year
  Sex: Female

DRUGS (1)
  1. VELETRI [Suspect]
     Active Substance: EPOPROSTENOL
     Indication: PULMONARY ARTERIAL HYPERTENSION
     Dosage: 7 NG/KG, PER MIN
     Route: 042
     Dates: start: 20181218, end: 20190104

REACTIONS (5)
  - Blood pressure fluctuation [Unknown]
  - Condition aggravated [Unknown]
  - Cardiopulmonary failure [Fatal]
  - Seizure like phenomena [Unknown]
  - Nausea [Unknown]

NARRATIVE: CASE EVENT DATE: 20190104
